FAERS Safety Report 7484031-3 (Version None)
Quarter: 2011Q2

REPORT INFORMATION
  Report Type: 
  Country: None (occurrence: None)
  Receive Date: 20110517
  Receipt Date: 20110421
  Transmission Date: 20111010
  Serious: Yes (Other)
  Sender: FDA-Public Use
  Company Number: US-BAYER-2011-014118

PATIENT
  Age: 25 Year
  Sex: Female
  Weight: 158.73 kg

DRUGS (13)
  1. ALBUTEROL [Concomitant]
     Dosage: UNK
     Dates: start: 20081104
  2. PIROXICAM [Concomitant]
     Dosage: 20 MG, UNK
     Dates: start: 20081124
  3. TRAMADOL HYDROCHLORIDE [Concomitant]
     Dosage: 50 MG, UNK
     Dates: start: 20081208
  4. ORTHO TRI-CYCLEN [Concomitant]
     Dosage: UNK
     Dates: start: 20090501, end: 20090601
  5. DUONEB [Concomitant]
     Dosage: UNK
     Dates: start: 20081104
  6. YAZ [Suspect]
     Indication: ACNE
     Dosage: UNK
     Dates: start: 20070101, end: 20090101
  7. ADVAIR DISKUS 100/50 [Concomitant]
     Dosage: UNK
     Dates: start: 20081104
  8. SINGULAIR [Concomitant]
     Dosage: 10 MG, UNK
     Dates: start: 20081104
  9. METFORMIN HCL [Concomitant]
     Dosage: UNK
     Dates: start: 20081104
  10. PROZAC [Concomitant]
     Dosage: 20 MG, BID
     Dates: start: 20081201
  11. ABILIFY [Concomitant]
     Dosage: 15 MG, UNK
     Dates: start: 20081202
  12. PHENERGAN HCL [Concomitant]
     Dosage: UNK
     Dates: start: 20090301
  13. HYDROXYZINE [Concomitant]
     Dosage: UNK
     Dates: start: 20090226

REACTIONS (2)
  - CHOLELITHIASIS [None]
  - GALLBLADDER DISORDER [None]
